FAERS Safety Report 8990707 (Version 1)
Quarter: 2012Q4

REPORT INFORMATION
  Report Type: Spontaneous
  Country: US (occurrence: None)
  Receive Date: 20121226
  Receipt Date: 20121226
  Transmission Date: 20130627
  Serious: Yes (Life-Threatening, Hospitalization)
  Sender: FDA-Public Use
  Company Number: None

PATIENT
  Age: 65 Year
  Sex: Male
  Weight: 140.7 kg

DRUGS (4)
  1. ENOXAPARIN [Suspect]
     Indication: ATRIAL FIBRILLATION
     Dosage: 150 MG BID SQ
     Route: 058
     Dates: start: 20121213, end: 20121214
  2. ENOXAPARIN [Suspect]
     Indication: CARDIAC VENTRICULAR THROMBOSIS
     Dosage: 150 MG BID SQ
     Route: 058
     Dates: start: 20121213, end: 20121214
  3. WARFARIN [Suspect]
     Indication: ATRIAL FIBRILLATION
     Dosage: 5 MG  AT BEDTIME  PO
     Route: 048
     Dates: start: 20121210, end: 20121214
  4. WARFARIN [Suspect]
     Indication: TRANSIENT ISCHEMIC ATTACK
     Dosage: 5 MG  AT BEDTIME  PO
     Route: 048
     Dates: start: 20121210, end: 20121214

REACTIONS (4)
  - Gastric haemorrhage [None]
  - Anticoagulation drug level below therapeutic [None]
  - Refusal of treatment by patient [None]
  - Intracardiac thrombus [None]
